FAERS Safety Report 7220213-3 (Version None)
Quarter: 2011Q1

REPORT INFORMATION
  Report Type: 
  Country: None (occurrence: None)
  Receive Date: 20110111
  Receipt Date: 20110104
  Transmission Date: 20110831
  Serious: Yes (Disabling)
  Sender: FDA-Public Use
  Company Number: US-MERCK-1101USA00245

PATIENT
  Sex: Female

DRUGS (4)
  1. FOSAMAX [Suspect]
     Route: 048
     Dates: start: 20080101, end: 20080101
  2. FOSAMAX [Suspect]
     Route: 048
     Dates: start: 20000101, end: 20060101
  3. BONIVA [Suspect]
     Route: 048
     Dates: start: 20060101, end: 20080101
  4. BONIVA [Suspect]
     Route: 048
     Dates: start: 20060101, end: 20060101

REACTIONS (4)
  - STRESS FRACTURE [None]
  - FEMUR FRACTURE [None]
  - LOW TURNOVER OSTEOPATHY [None]
  - OSTEOPOROSIS [None]
